FAERS Safety Report 5315576-X (Version None)
Quarter: 2007Q2

REPORT INFORMATION
  Report Type: 
  Country: None (occurrence: None)
  Receive Date: 20070503
  Receipt Date: 20070424
  Transmission Date: 20071010
  Serious: Yes (Hospitalization)
  Sender: FDA-Public Use
  Company Number: US-ELI_LILLY_AND_COMPANY-US200704000080

PATIENT
  Age: 26 Year
  Sex: Male

DRUGS (1)
  1. ZYPREXA [Suspect]
     Indication: PSYCHOTIC DISORDER
     Dosage: 20 MG, UNKNOWN
     Route: 048
     Dates: start: 20070329

REACTIONS (3)
  - OVERDOSE [None]
  - PSYCHOTIC DISORDER [None]
  - SOMNOLENCE [None]
